FAERS Safety Report 9379045 (Version 1)
Quarter: 2013Q2

REPORT INFORMATION
  Report Type: Spontaneous
  Country: JP (occurrence: None)
  Receive Date: 20130520
  Receipt Date: 20130520
  Transmission Date: 20140414
  Serious: Yes (Death)
  Sender: FDA-Public Use
  Company Number: DKLU1089909

PATIENT
  Age: 81 Day
  Sex: Female

DRUGS (5)
  1. INDOCIN [Suspect]
     Indication: PATENT DUCTUS ARTERIOSUS
     Route: 042
     Dates: start: 20110301, end: 20110311
  2. VICCILLIN [Suspect]
     Indication: SEPSIS
     Route: 042
     Dates: start: 20110228, end: 20110320
  3. MILLISROL (GLYCERYL TRINITRATE) [Concomitant]
  4. INOVAN (DOPAMINE HYDROCHLORIDE) [Concomitant]
  5. DOBUTREX (DOBUTAMINE HYDROCHLORIDE) [Concomitant]

REACTIONS (5)
  - Hepatomegaly [None]
  - Ascites [None]
  - Hepatic fibrosis [None]
  - Cholestasis [None]
  - Respiratory failure [None]
